FAERS Safety Report 9785993 (Version 1)
Quarter: 2013Q4

REPORT INFORMATION
  Report Type: Spontaneous
  Country: US (occurrence: US)
  Receive Date: 20131227
  Receipt Date: 20131227
  Transmission Date: 20140711
  Serious: Yes (Other)
  Sender: FDA-Public Use
  Company Number: US-PFIZER INC-2013366786

PATIENT
  Age: 52 Year
  Sex: Male
  Weight: 90.7 kg

DRUGS (3)
  1. VIAGRA [Suspect]
     Indication: ERECTILE DYSFUNCTION
     Dosage: 50 MG, ONCE
     Dates: start: 20131221
  2. CRESTOR [Concomitant]
     Indication: BLOOD CHOLESTEROL ABNORMAL
     Dosage: 10 MG, DAILY
  3. LISINOPRIL [Concomitant]
     Indication: HYPERTENSION
     Dosage: 10 MG, DAILY

REACTIONS (3)
  - Haematochezia [Not Recovered/Not Resolved]
  - Abdominal discomfort [Not Recovered/Not Resolved]
  - Diarrhoea [Not Recovered/Not Resolved]
